FAERS Safety Report 22154489 (Version 1)
Quarter: 2023Q1

REPORT INFORMATION
  Report Type: Spontaneous
  Country: US (occurrence: US)
  Receive Date: 20230330
  Receipt Date: 20230330
  Transmission Date: 20230417
  Serious: Yes (Death, Other)
  Sender: FDA-Public Use
  Company Number: US-drreddys-LIT/USA/23/0162875

PATIENT
  Age: 57 Year
  Sex: Female

DRUGS (3)
  1. DOXORUBICIN HYDROCHLORIDE [Suspect]
     Active Substance: DOXORUBICIN HYDROCHLORIDE
     Indication: Pleural sarcoma
  2. IFOSFAMIDE [Suspect]
     Active Substance: IFOSFAMIDE
     Indication: Pleural sarcoma
  3. MESNA [Suspect]
     Active Substance: MESNA
     Indication: Pleural sarcoma

REACTIONS (4)
  - Obstructive shock [Fatal]
  - Metastases to heart [Unknown]
  - Metastases to lung [Unknown]
  - Drug ineffective for unapproved indication [Unknown]
